FAERS Safety Report 21334012 (Version 1)
Quarter: 2022Q3

REPORT INFORMATION
  Report Type: Spontaneous
  Country: US (occurrence: US)
  Receive Date: 20220914
  Receipt Date: 20220914
  Transmission Date: 20221026
  Serious: Yes (Other)
  Sender: FDA-Public Use
  Company Number: US-NOVARTISPH-NVSC2022US207318

PATIENT
  Age: 8 Year
  Sex: Male

DRUGS (3)
  1. CARBOPLATIN [Suspect]
     Active Substance: CARBOPLATIN
     Indication: Neoplasm
     Dosage: UNK UNK, CYCLIC
     Route: 042
  2. THIOTEPA [Suspect]
     Active Substance: THIOTEPA
     Indication: Neoplasm
     Dosage: UNK UNK, CYCLIC
     Route: 042
  3. ETOPOSIDE [Suspect]
     Active Substance: ETOPOSIDE
     Indication: Neoplasm
     Dosage: UNK UNK, CYCLIC
     Route: 042

REACTIONS (5)
  - Clostridium difficile colitis [Unknown]
  - Engraftment syndrome [Unknown]
  - Electrolyte imbalance [Unknown]
  - Feeding disorder [Unknown]
  - Product use in unapproved indication [Unknown]
